FAERS Safety Report 6883517-X (Version None)
Quarter: 2010Q3

REPORT INFORMATION
  Report Type: 
  Country: None (occurrence: None)
  Receive Date: 20100729
  Receipt Date: 20100720
  Transmission Date: 20110219
  Serious: Yes (Hospitalization)
  Sender: FDA-Public Use
  Company Number: US-B.I. PHARMACEUTICALS,INC./RIDGEFIELD-2010-BP-06194BP

PATIENT
  Sex: Male
  Weight: 90.7 kg

DRUGS (6)
  1. MIRAPEX [Suspect]
     Indication: PARKINSON'S DISEASE
     Dosage: 0.75 MG
  2. ARICEPT [Concomitant]
     Dosage: 10 MG
     Dates: start: 20080101
  3. NAMENDA [Concomitant]
     Dosage: 60 MG
     Dates: start: 20000101
  4. SIMVASTATIN [Concomitant]
     Dosage: 80 MG
  5. PROTONIX [Concomitant]
  6. SINGULAIR [Concomitant]

REACTIONS (5)
  - FALL [None]
  - HYPOTENSION [None]
  - LOSS OF CONSCIOUSNESS [None]
  - ORTHOSTATIC HYPOTENSION [None]
  - SYNCOPE [None]
